FAERS Safety Report 9392838 (Version 1)
Quarter: 2013Q3

REPORT INFORMATION
  Report Type: Spontaneous
  Country: US (occurrence: None)
  Receive Date: 20130708
  Receipt Date: 20130708
  Transmission Date: 20140515
  Serious: Yes (Hospitalization, Other)
  Sender: FDA-Public Use
  Company Number: None

PATIENT
  Age: 77 Year
  Sex: Female
  Weight: 90.72 kg

DRUGS (1)
  1. COUMADIN [Suspect]
     Indication: PULMONARY EMBOLISM
     Dosage: WARFARIN DAILY 2.5/5.0 MGM?PARTIALLY STOPPED MEDICINE

REACTIONS (3)
  - Fall [None]
  - Haematoma [None]
  - Local swelling [None]
